FAERS Safety Report 8178112-9 (Version None)
Quarter: 2012Q1

REPORT INFORMATION
  Report Type: 
  Country: None (occurrence: None)
  Receive Date: 20120301
  Receipt Date: 20120215
  Transmission Date: 20120608
  Serious: Yes (Other)
  Sender: FDA-Public Use
  Company Number: CHPA2012US003215

PATIENT
  Age: 51 Year
  Sex: Female

DRUGS (3)
  1. VITAMINS NOS [Concomitant]
     Dosage: UNK
  2. EXCEDRIN PM CAPLETS [Suspect]
     Dosage: 1 DF, ONCE/SINGLE
     Route: 048
  3. EXCEDRIN PM CAPLETS [Suspect]
     Indication: HEADACHE
     Dosage: 1 DF, ONCE/SINGLE
     Route: 048
     Dates: end: 20120210

REACTIONS (6)
  - UNDERDOSE [None]
  - EXOPHTHALMOS [None]
  - DIZZINESS [None]
  - OCULAR HYPERAEMIA [None]
  - INTRAOCULAR PRESSURE INCREASED [None]
  - HEADACHE [None]
